FAERS Safety Report 13040849 (Version 1)
Quarter: 2016Q4

REPORT INFORMATION
  Report Type: Spontaneous
  Country: US (occurrence: US)
  Receive Date: 20161219
  Receipt Date: 20161219
  Transmission Date: 20170207
  Serious: No
  Sender: FDA-Public Use
  Company Number: US-PFIZER INC-2016575481

PATIENT
  Age: 3 Year

DRUGS (5)
  1. CHILDRENS ADVIL [Suspect]
     Active Substance: IBUPROFEN
     Indication: INSOMNIA
  2. CHILDRENS ADVIL [Suspect]
     Active Substance: IBUPROFEN
     Indication: EYE PRURITUS
  3. CHILDRENS ADVIL [Suspect]
     Active Substance: IBUPROFEN
     Indication: SNEEZING
  4. CHILDRENS ADVIL [Suspect]
     Active Substance: IBUPROFEN
     Indication: OROPHARYNGEAL PAIN
     Dosage: UNK
  5. CHILDRENS ADVIL [Suspect]
     Active Substance: IBUPROFEN
     Indication: LACRIMATION INCREASED

REACTIONS (2)
  - Therapeutic response unexpected [Unknown]
  - Product use issue [Unknown]
